FAERS Safety Report 5808587-9 (Version None)
Quarter: 2008Q3

REPORT INFORMATION
  Report Type: 
  Country: None (occurrence: None)
  Receive Date: 20080714
  Receipt Date: 20080704
  Transmission Date: 20090109
  Serious: Yes (Hospitalization, Other)
  Sender: FDA-Public Use
  Company Number: BE-AMGEN-UK274091

PATIENT
  Sex: Male
  Weight: 61 kg

DRUGS (5)
  1. KEPIVANCE [Suspect]
     Indication: MUCOSAL INFLAMMATION
     Route: 042
     Dates: start: 20080301, end: 20080303
  2. MYLERAN [Suspect]
  3. ACYCLOVIR [Concomitant]
     Route: 048
     Dates: start: 20080115
  4. OMEPRAZOLE [Concomitant]
     Route: 048
     Dates: start: 20071220
  5. ZOLPIDEM TARTRATE [Concomitant]
     Route: 048
     Dates: start: 20070220

REACTIONS (4)
  - FACE OEDEMA [None]
  - PYREXIA [None]
  - RASH [None]
  - STOMATITIS [None]
